FAERS Safety Report 7792450-0 (Version None)
Quarter: 2011Q4

REPORT INFORMATION
  Report Type: 
  Country: None (occurrence: None)
  Receive Date: 20111003
  Receipt Date: 20110928
  Transmission Date: 20120403
  Serious: No
  Sender: FDA-Public Use
  Company Number: US-PFIZER INC-2011231379

PATIENT
  Age: 27 Year
  Sex: Female

DRUGS (1)
  1. DEPO-PROVERA [Suspect]
     Dosage: UNK
     Dates: start: 20010101

REACTIONS (2)
  - WEIGHT INCREASED [None]
  - HORMONE LEVEL ABNORMAL [None]
